FAERS Safety Report 7668126-7 (Version None)
Quarter: 2011Q3

REPORT INFORMATION
  Report Type: 
  Country: None (occurrence: None)
  Receive Date: 20110808
  Receipt Date: 20110727
  Transmission Date: 20111222
  Serious: No
  Sender: FDA-Public Use
  Company Number: US-JNJFOC-20110800484

PATIENT
  Sex: Female
  Weight: 61.24 kg

DRUGS (7)
  1. SLEEPING PILL NOS [Concomitant]
     Indication: SLEEP DISORDER THERAPY
     Route: 048
  2. ANTIDIABETIC PILL (NOS) [Concomitant]
     Indication: DIABETES MELLITUS
     Dosage: 5MG/ 1/2 TABLET/ TWO TIMES A DAY
     Route: 048
  3. VICODIN [Concomitant]
     Indication: PAIN
     Dosage: 5/500MG EVERY 4-6 HOURS AS NEEDED
     Route: 048
  4. FENTANYL [Suspect]
     Indication: PAIN
     Dosage: NDC#UNKNOWN
     Route: 062
  5. FENTANYL [Suspect]
     Dosage: NDC#0781-7243-55
     Route: 062
     Dates: start: 20110101
  6. SLEEPING PILL NOS [Concomitant]
     Route: 048
  7. MUSCLE RELAXANT [Concomitant]
     Indication: MUSCLE RELAXANT THERAPY
     Route: 048

REACTIONS (2)
  - PRODUCT QUALITY ISSUE [None]
  - DRUG ADMINISTERED AT INAPPROPRIATE SITE [None]
